FAERS Safety Report 5301489-6 (Version None)
Quarter: 2007Q2

REPORT INFORMATION
  Report Type: 
  Country: None (occurrence: None)
  Receive Date: 20070412
  Receipt Date: 20070328
  Transmission Date: 20071010
  Serious: Yes (Other)
  Sender: FDA-Public Use
  Company Number: 012356

PATIENT
  Age: 35 Year
  Sex: Female
  Weight: 109.8 kg

DRUGS (9)
  1. LEFLUNOMIDE [Suspect]
     Indication: RHEUMATOID ARTHRITIS
     Dosage: 20 MG, QD, ORAL
     Route: 048
     Dates: start: 20060901, end: 20070106
  2. PRENATAL VITAMINS (ASCORBIC ACID, MINERALS NOS, VITAMIN B NOS, RETINOL [Concomitant]
  3. MULTIVITAMINS (ERGOCALCIFEROL, PANTHENOL, NICOTINAMIDE, RIBOFLAVIN, TH [Concomitant]
  4. PLAQUENIL [Concomitant]
  5. PREDNISONE TAB [Concomitant]
  6. VICODIN [Concomitant]
  7. AMBIEN [Concomitant]
  8. SYTHROID [Concomitant]
  9. TYLENOL [Concomitant]

REACTIONS (3)
  - ABORTION SPONTANEOUS [None]
  - DRUG EXPOSURE DURING PREGNANCY [None]
  - PREGNANCY [None]
